FAERS Safety Report 21140577 (Version 5)
Quarter: 2022Q4

REPORT INFORMATION
  Report Type: Spontaneous
  Country: US (occurrence: US)
  Receive Date: 20220728
  Receipt Date: 20221223
  Transmission Date: 20230113
  Serious: No
  Sender: FDA-Public Use
  Company Number: US-BIOGEN-2022BI01142515

PATIENT
  Age: 37 Year
  Sex: Female

DRUGS (7)
  1. TYSABRI [Suspect]
     Active Substance: NATALIZUMAB
     Indication: Multiple sclerosis
     Route: 050
     Dates: start: 20210910
  2. TYSABRI [Suspect]
     Active Substance: NATALIZUMAB
     Route: 050
  3. MAGNESIUM [Concomitant]
     Active Substance: MAGNESIUM
     Route: 050
  4. BACLOFEN [Concomitant]
     Active Substance: BACLOFEN
     Route: 050
  5. TOPIRAMATE [Concomitant]
     Active Substance: TOPIRAMATE
     Route: 050
  6. OXCARBAZEPINE [Concomitant]
     Active Substance: OXCARBAZEPINE
     Route: 050
  7. CITALOPRAM [Concomitant]
     Active Substance: CITALOPRAM HYDROBROMIDE
     Route: 050

REACTIONS (6)
  - Rash pruritic [Unknown]
  - Feeling abnormal [Unknown]
  - Temperature intolerance [Unknown]
  - Insomnia [Unknown]
  - Hypersensitivity [Unknown]
  - Pruritus [Recovered/Resolved]

NARRATIVE: CASE EVENT DATE: 20220601
